FAERS Safety Report 4817313-1 (Version None)
Quarter: 2005Q4

REPORT INFORMATION
  Report Type: 
  Country: None (occurrence: None)
  Receive Date: 20051101
  Receipt Date: 20050725
  Transmission Date: 20060501
  Serious: Yes (Death)
  Sender: FDA-Public Use
  Company Number: PHBS2005JP10935

PATIENT

DRUGS (2)
  1. NEORAL [Suspect]
     Indication: APLASTIC ANAEMIA
     Dosage: 150 MG/DAY
     Route: 048
  2. NEORAL [Suspect]
     Dosage: 100 MG/DAY
     Route: 048

REACTIONS (2)
  - BLOOD CREATININE INCREASED [None]
  - SEPSIS [None]
